FAERS Safety Report 16128482 (Version 1)
Quarter: 2019Q1

REPORT INFORMATION
  Report Type: Spontaneous
  Country: FR (occurrence: FR)
  Receive Date: 20190328
  Receipt Date: 20190328
  Transmission Date: 20190418
  Serious: Yes (Hospitalization)
  Sender: FDA-Public Use
  Company Number: FR-TEVA-2019-FR-1030497

PATIENT
  Age: 42 Year
  Sex: Male

DRUGS (3)
  1. PARACETAMOL [Suspect]
     Active Substance: ACETAMINOPHEN
     Indication: INFLUENZA LIKE ILLNESS
     Dosage: UNSPECIFIED
     Route: 048
     Dates: start: 20190203, end: 20190210
  2. AMOXICILLINE [Suspect]
     Active Substance: AMOXICILLIN
     Indication: INFLUENZA LIKE ILLNESS
     Dosage: UNSPECIFIED
     Route: 048
     Dates: start: 20190203, end: 20190208
  3. IBUPROFENE [Suspect]
     Active Substance: IBUPROFEN
     Indication: INFLUENZA LIKE ILLNESS
     Dosage: UNSPECIFIED
     Route: 048
     Dates: start: 20190203, end: 20190210

REACTIONS (4)
  - Rash maculo-papular [Recovering/Resolving]
  - Pyrexia [Recovering/Resolving]
  - Eosinophilia [Recovering/Resolving]
  - Eyelid oedema [Recovering/Resolving]

NARRATIVE: CASE EVENT DATE: 20190208
